FAERS Safety Report 6828339-0 (Version None)
Quarter: 2010Q3

REPORT INFORMATION
  Report Type: 
  Country: None (occurrence: None)
  Receive Date: 20100709
  Receipt Date: 20070206
  Transmission Date: 20110219
  Serious: No
  Sender: FDA-Public Use
  Company Number: US-PFIZER INC-2007010654

PATIENT
  Sex: Female
  Weight: 58.97 kg

DRUGS (3)
  1. CHANTIX [Suspect]
     Indication: SMOKING CESSATION THERAPY
     Dates: start: 20070101, end: 20070204
  2. LIPITOR [Concomitant]
  3. SYNTHROID [Concomitant]
     Indication: THYROIDECTOMY

REACTIONS (2)
  - NAUSEA [None]
  - VOMITING [None]
